FAERS Safety Report 7528613-9 (Version None)
Quarter: 2011Q2

REPORT INFORMATION
  Report Type: 
  Country: None (occurrence: None)
  Receive Date: 20110531
  Receipt Date: 20110518
  Transmission Date: 20111010
  Serious: Yes (Hospitalization)
  Sender: FDA-Public Use
  Company Number: 2011SP001695

PATIENT
  Age: 24 Year
  Sex: Female
  Weight: 49.9 kg

DRUGS (2)
  1. LATUDA [Suspect]
     Indication: BIPOLAR DISORDER
     Dosage: 40 MG;PRN;ORAL
     Route: 048
     Dates: start: 20110504, end: 20110516
  2. TOPAMAX [Suspect]

REACTIONS (3)
  - DIZZINESS [None]
  - CONFUSIONAL STATE [None]
  - HALLUCINATIONS, MIXED [None]
